FAERS Safety Report 23571337 (Version 1)
Quarter: 2024Q1

REPORT INFORMATION
  Report Type: Spontaneous
  Country: US (occurrence: US)
  Receive Date: 20240227
  Receipt Date: 20240227
  Transmission Date: 20240410
  Serious: Yes (Hospitalization, Other)
  Sender: FDA-Public Use
  Company Number: US-PFIZER INC-PV202400027055

PATIENT
  Age: 27 Year
  Sex: Female

DRUGS (8)
  1. METHOTREXATE SODIUM [Suspect]
     Active Substance: METHOTREXATE SODIUM
     Dosage: 25 MG, ON THE EIGHTH HOSPITAL DAY
     Route: 030
  2. METHOTREXATE SODIUM [Suspect]
     Active Substance: METHOTREXATE SODIUM
     Dosage: 37.5 MG, ON THE 15TH HOSPITAL DAY
     Route: 030
  3. TRIAMCINOLONE ACETONIDE [Concomitant]
     Active Substance: TRIAMCINOLONE ACETONIDE
     Indication: Arthritis
     Dosage: 0.1 %
     Route: 061
  4. TRIAMCINOLONE ACETONIDE [Concomitant]
     Active Substance: TRIAMCINOLONE ACETONIDE
     Indication: Skin lesion
  5. SULINDAC [Concomitant]
     Active Substance: SULINDAC
     Indication: Arthritis
     Dosage: 450 MG, DAILY IN THREE DIVIDED DOSES
     Route: 048
  6. SULINDAC [Concomitant]
     Active Substance: SULINDAC
     Indication: Skin lesion
  7. COAL TAR [Concomitant]
     Active Substance: COAL TAR
     Indication: Arthritis
     Dosage: IN A GEL BASE, 2X/DAY
     Route: 061
  8. COAL TAR [Concomitant]
     Active Substance: COAL TAR
     Indication: Skin lesion

REACTIONS (3)
  - Sunburn [Recovered/Resolved]
  - Condition aggravated [Recovered/Resolved]
  - Therapeutic product effect incomplete [Unknown]
